FAERS Safety Report 12255008 (Version 2)
Quarter: 2016Q2

REPORT INFORMATION
  Report Type: Spontaneous
  Country: US (occurrence: US)
  Receive Date: 20160411
  Receipt Date: 20160629
  Transmission Date: 20160815
  Serious: No
  Sender: FDA-Public Use
  Company Number: US-ELI_LILLY_AND_COMPANY-US201603005913

PATIENT
  Sex: Female

DRUGS (5)
  1. GLIMEPIRIDE. [Concomitant]
     Active Substance: GLIMEPIRIDE
  2. FARXIGA [Concomitant]
     Active Substance: DAPAGLIFLOZIN PROPANEDIOL
  3. HUMULIN 70/30 [Suspect]
     Active Substance: INSULIN HUMAN
     Dosage: 40 U, BID
     Route: 065
     Dates: start: 2014, end: 201602
  4. BYDUREON [Concomitant]
     Active Substance: EXENATIDE
  5. HUMULIN 70/30 [Suspect]
     Active Substance: INSULIN HUMAN
     Indication: TYPE 2 DIABETES MELLITUS
     Dosage: 30 U, BID
     Route: 065
     Dates: start: 2014, end: 201602

REACTIONS (5)
  - Back pain [Unknown]
  - Drug dose omission [Unknown]
  - Tooth infection [Unknown]
  - Blood glucose increased [Unknown]
  - Pain in extremity [Unknown]
